FAERS Safety Report 5528286-0 (Version None)
Quarter: 2007Q4

REPORT INFORMATION
  Report Type: 
  Country: None (occurrence: None)
  Receive Date: 20071128
  Receipt Date: 20071116
  Transmission Date: 20080405
  Serious: Yes (Other)
  Sender: FDA-Public Use
  Company Number: BR-PFIZER INC-2007097005

PATIENT
  Sex: Female

DRUGS (5)
  1. DETRUSITOL LA [Suspect]
     Indication: HYPERTONIC BLADDER
     Route: 048
     Dates: start: 20070501, end: 20070601
  2. SEPURIN [Concomitant]
  3. EUTHYROX [Concomitant]
  4. OMEPRAZOLE [Concomitant]
  5. FLUOXETINE [Concomitant]

REACTIONS (1)
  - INTRAOCULAR PRESSURE INCREASED [None]
